FAERS Safety Report 12875166 (Version 1)
Quarter: 2016Q4

REPORT INFORMATION
  Report Type: Spontaneous
  Country: FR (occurrence: FR)
  Receive Date: 20161024
  Receipt Date: 20161024
  Transmission Date: 20170207
  Serious: Yes (Hospitalization, Other)
  Sender: FDA-Public Use
  Company Number: FR-BAXTER-2016BAX052640

PATIENT
  Age: 72 Year
  Sex: Male

DRUGS (13)
  1. ENDOXAN 50 MG, COMPRIM? ENROB? [Suspect]
     Active Substance: CYCLOPHOSPHAMIDE
     Dosage: SECOND COURSE OF RFC; DAY 2 TO DAY 4
     Route: 048
     Dates: start: 20160602, end: 20160605
  2. ENDOXAN 50 MG, COMPRIM? ENROB? [Suspect]
     Active Substance: CYCLOPHOSPHAMIDE
     Indication: CHRONIC LYMPHOCYTIC LEUKAEMIA RECURRENT
     Dosage: FIRST COURSE OF RFC
     Route: 048
     Dates: start: 20160406
  3. VINCRISTINE [Suspect]
     Active Substance: VINCRISTINE
     Indication: LYMPHOMA
     Dosage: 8 COURSES OF CHOP THERAPY
     Route: 065
  4. PREDNISONE. [Suspect]
     Active Substance: PREDNISONE
     Indication: LYMPHOMA
     Dosage: 8 COURSES OF CHOP THERAPY
     Route: 065
  5. MABTHERA [Suspect]
     Active Substance: RITUXIMAB
     Dosage: SECOND COURSE OF RFC, 500 MG EQUAL TO 375MG/M2, DAY 1
     Route: 042
     Dates: start: 20160601, end: 20160601
  6. ENDOXAN 1000 MG, POUDRE POUR SOLUTION INJECTABLE [Suspect]
     Active Substance: CYCLOPHOSPHAMIDE
     Indication: LYMPHOMA
     Dosage: 8 COURSES OF CHOP THERAPY
     Route: 065
  7. DOXORUBICIN [Suspect]
     Active Substance: DOXORUBICIN
     Indication: LYMPHOMA
     Dosage: 8 COURSES OF CHOP THERAPY
     Route: 065
  8. FLUDARA [Suspect]
     Active Substance: FLUDARABINE PHOSPHATE
     Dosage: SECOND COURSE OF RFC; DAY 2 TO DAY 4
     Route: 048
     Dates: start: 20160602, end: 20160605
  9. CIPROFLOXACIN. [Suspect]
     Active Substance: CIPROFLOXACIN
     Indication: FEBRILE BONE MARROW APLASIA
     Dosage: IN THE MORNING
     Route: 065
     Dates: start: 20160627, end: 20160701
  10. TAZOCILLINE [Suspect]
     Active Substance: PIPERACILLIN SODIUM\TAZOBACTAM SODIUM
     Indication: FEBRILE BONE MARROW APLASIA
     Dosage: IN THE MORNING
     Route: 065
     Dates: start: 20160627, end: 20160701
  11. MABTHERA [Suspect]
     Active Substance: RITUXIMAB
     Indication: CHRONIC LYMPHOCYTIC LEUKAEMIA RECURRENT
     Dosage: FIRST COURSE OF RFC
     Route: 042
     Dates: start: 20160406
  12. FLUDARA [Suspect]
     Active Substance: FLUDARABINE PHOSPHATE
     Indication: CHRONIC LYMPHOCYTIC LEUKAEMIA RECURRENT
     Dosage: FIRST COURSE OF RFC
     Route: 048
     Dates: start: 20160406
  13. ZYVOXID [Suspect]
     Active Substance: LINEZOLID
     Indication: FEBRILE BONE MARROW APLASIA
     Dosage: IN THE  MORNING
     Route: 065
     Dates: start: 20160627, end: 20160629

REACTIONS (3)
  - Febrile bone marrow aplasia [Recovered/Resolved]
  - Rash [Unknown]
  - Chronic lymphocytic leukaemia recurrent [Unknown]

NARRATIVE: CASE EVENT DATE: 201603
